FAERS Safety Report 6336532-9 (Version None)
Quarter: 2009Q3

REPORT INFORMATION
  Report Type: 
  Country: None (occurrence: None)
  Receive Date: 20090901
  Receipt Date: 20090825
  Transmission Date: 20100115
  Serious: Yes (Death, Other)
  Sender: FDA-Public Use
  Company Number: ES-ROCHE-652675

PATIENT
  Age: 6 Year
  Sex: Female

DRUGS (10)
  1. DIAZEPAM [Suspect]
     Route: 042
  2. MIDAZOLAM HCL [Suspect]
     Route: 065
  3. GANCICLOVIR [Suspect]
     Route: 065
  4. PHENYTOIN [Suspect]
     Route: 042
  5. VALPROATE SODIUM [Suspect]
     Route: 048
  6. PROPOFOL [Suspect]
     Route: 065
  7. DEXAMETHASONE [Suspect]
     Indication: CEREBELLAR TUMOUR
     Route: 065
  8. CISPLATIN [Suspect]
     Indication: CEREBELLAR TUMOUR
     Route: 065
  9. ETOPOSIDE [Suspect]
     Indication: CEREBELLAR TUMOUR
     Route: 065
  10. ACYCLOVIR [Suspect]
     Route: 065

REACTIONS (3)
  - CONVULSION [None]
  - ENCEPHALITIS HERPES [None]
  - MALIGNANT NEOPLASM PROGRESSION [None]
